FAERS Safety Report 5447256-4 (Version None)
Quarter: 2007Q3

REPORT INFORMATION
  Report Type: 
  Country: None (occurrence: None)
  Receive Date: 20070905
  Receipt Date: 20070905
  Transmission Date: 20080115
  Serious: No
  Sender: FDA-Public Use
  Company Number: None

PATIENT
  Age: 37 Year
  Sex: Female
  Weight: 108.8633 kg

DRUGS (6)
  1. OXYCODONE 20MG - TEVA [Suspect]
     Indication: BRAIN NEOPLASM
     Dosage: 20 MG 3XDAY
     Dates: start: 20070714, end: 20070810
  2. OXYCODONE 20MG - TEVA [Suspect]
     Indication: OLIGODENDROGLIOMA
     Dosage: 20 MG 3XDAY
     Dates: start: 20070714, end: 20070810
  3. OXYCODONE 20MG - TEVA [Suspect]
     Indication: TRIGEMINAL NEURALGIA
     Dosage: 20 MG 3XDAY
     Dates: start: 20070714, end: 20070810
  4. OXYCODONE 10MG - TEVA [Suspect]
     Indication: BRAIN NEOPLASM
     Dosage: 10 MG 3XDAY
     Dates: start: 20070714, end: 20070810
  5. OXYCODONE 10MG - TEVA [Suspect]
     Indication: OLIGODENDROGLIOMA
     Dosage: 10 MG 3XDAY
     Dates: start: 20070714, end: 20070810
  6. OXYCODONE 10MG - TEVA [Suspect]
     Indication: TRIGEMINAL NEURALGIA
     Dosage: 10 MG 3XDAY
     Dates: start: 20070714, end: 20070810

REACTIONS (4)
  - BRAIN NEOPLASM [None]
  - CONDITION AGGRAVATED [None]
  - DRUG INEFFECTIVE [None]
  - THERAPEUTIC RESPONSE UNEXPECTED WITH DRUG SUBSTITUTION [None]
